FAERS Safety Report 10584188 (Version 1)
Quarter: 2014Q4

REPORT INFORMATION
  Report Type: Spontaneous
  Country: GB (occurrence: GB)
  Receive Date: 20141114
  Receipt Date: 20141114
  Transmission Date: 20150529
  Serious: Yes (Other)
  Sender: FDA-Public Use
  Company Number: GB-PFIZER INC-2014310669

PATIENT
  Age: 22 Year
  Sex: Female
  Weight: 90 kg

DRUGS (2)
  1. DEPO-PROVERA [Suspect]
     Active Substance: MEDROXYPROGESTERONE ACETATE
     Indication: CONTRACEPTION
     Dosage: 1 DF, UNK
     Route: 030
     Dates: start: 20140606, end: 20140806
  2. FLUOXETINE [Concomitant]
     Active Substance: FLUOXETINE\FLUOXETINE HYDROCHLORIDE
     Dosage: 40 MG, 1X/DAY

REACTIONS (1)
  - Breast discharge [Recovered/Resolved]

NARRATIVE: CASE EVENT DATE: 20140620
